FAERS Safety Report 13973890 (Version 1)
Quarter: 2017Q3

REPORT INFORMATION
  Report Type: Spontaneous
  Country: CN (occurrence: CN)
  Receive Date: 20170915
  Receipt Date: 20170915
  Transmission Date: 20171128
  Serious: Yes (Life-Threatening, Hospitalization, Other)
  Sender: FDA-Public Use
  Company Number: CN-CIPLA LTD.-2017CN16203

PATIENT

DRUGS (10)
  1. PACLITAXEL. [Suspect]
     Active Substance: PACLITAXEL
     Indication: ADENOCARCINOMA GASTRIC
     Dosage: 150 MG, TWO CYCLICAL, DAY 1
     Route: 065
     Dates: start: 20120207, end: 20120301
  2. XELODA [Suspect]
     Active Substance: CAPECITABINE
     Indication: ADENOCARCINOMA GASTRIC
     Dosage: 1500 MG, 1 CYCLICAL, TWICE A DAY DAY 1 TO DAY 14
     Route: 065
     Dates: start: 20120207, end: 20120301
  3. OXALIPLATIN. [Suspect]
     Active Substance: OXALIPLATIN
     Indication: ADENOCARCINOMA GASTRIC
     Dosage: 200 MG, 1 CYCLICAL, DAY 1
     Route: 065
     Dates: start: 20120207, end: 20120301
  4. PACLITAXEL. [Suspect]
     Active Substance: PACLITAXEL
     Dosage: 120 MG, TWO CYCLICAL, DAY 8
     Route: 065
     Dates: start: 20120207, end: 20120301
  5. CEFTRIAXONE. [Suspect]
     Active Substance: CEFTRIAXONE
     Indication: ANTIBIOTIC THERAPY
     Dosage: UNK
     Route: 065
     Dates: start: 201203, end: 2012
  6. MEROPENEM. [Suspect]
     Active Substance: MEROPENEM
     Indication: ANTIBIOTIC THERAPY
     Dosage: UNK
     Route: 065
     Dates: start: 201203, end: 2012
  7. MOXIFLOXACIN. [Suspect]
     Active Substance: MOXIFLOXACIN
     Indication: ANTIBIOTIC THERAPY
     Dosage: UNK
     Route: 065
     Dates: start: 201203, end: 2012
  8. CEFUROXIME. [Suspect]
     Active Substance: CEFUROXIME
     Indication: ANTIBIOTIC THERAPY
     Dosage: 1.5 G, BID
     Route: 065
     Dates: start: 20120426
  9. MEROPENEM. [Suspect]
     Active Substance: MEROPENEM
     Dosage: UNK
     Route: 065
     Dates: start: 201204, end: 20120426
  10. CIPROFLOXACIN. [Suspect]
     Active Substance: CIPROFLOXACIN
     Indication: ANTIBIOTIC THERAPY
     Dosage: UNK
     Route: 065
     Dates: start: 201204

REACTIONS (8)
  - Gastrointestinal haemorrhage [Recovered/Resolved]
  - Fatigue [Unknown]
  - Arterial rupture [Recovered/Resolved]
  - Hypotension [Unknown]
  - Dizziness [Unknown]
  - Vomiting [Unknown]
  - Nausea [Unknown]
  - Aspergillus infection [Recovered/Resolved]

NARRATIVE: CASE EVENT DATE: 2012
